FAERS Safety Report 4521153-0 (Version None)
Quarter: 2004Q4

REPORT INFORMATION
  Report Type: 
  Country: None (occurrence: None)
  Receive Date: 20041203
  Receipt Date: 20041129
  Transmission Date: 20050328
  Serious: Yes (Other)
  Sender: FDA-Public Use
  Company Number: 200411130BVD

PATIENT

DRUGS (1)
  1. AVELOX [Suspect]

REACTIONS (1)
  - VISUAL FIELD DEFECT [None]
